FAERS Safety Report 4968746-4 (Version None)
Quarter: 2006Q2

REPORT INFORMATION
  Report Type: 
  Country: None (occurrence: None)
  Receive Date: 20060405
  Receipt Date: 20060322
  Transmission Date: 20061013
  Serious: Yes (Other)
  Sender: FDA-Public Use
  Company Number: 2006-BP-03248RO

PATIENT
  Age: 74 Year
  Sex: Female

DRUGS (5)
  1. LIDOCAINE [Suspect]
     Indication: ANAESTHESIA
     Dosage: IO
     Route: 031
  2. BUPIVACAINE [Suspect]
     Indication: ANAESTHESIA
     Dosage: IO
     Route: 031
  3. HYALURONIDASE [Suspect]
     Indication: ANAESTHESIA
     Dosage: IO
     Route: 031
  4. POVIDONE IODINE [Suspect]
     Indication: ENDOPHTHALMITIS
     Dosage: TO
     Route: 061
  5. POVIDONE IODINE [Suspect]
     Indication: PROPHYLAXIS
     Dosage: TO
     Route: 061

REACTIONS (10)
  - CONJUNCTIVAL OEDEMA [None]
  - EXOPHTHALMOS [None]
  - EYE MOVEMENT DISORDER [None]
  - EYE PAIN [None]
  - EYELID OEDEMA [None]
  - INTRAOCULAR PRESSURE INCREASED [None]
  - MUSCLE SWELLING [None]
  - PAPILLOEDEMA [None]
  - PAROPHTHALMIA [None]
  - VISUAL ACUITY REDUCED [None]
